FAERS Safety Report 6255189-9 (Version None)
Quarter: 2009Q3

REPORT INFORMATION
  Report Type: 
  Country: None (occurrence: None)
  Receive Date: 20090702
  Receipt Date: 20090622
  Transmission Date: 20100115
  Serious: Yes (Death, Other)
  Sender: FDA-Public Use
  Company Number: US-PFIZER INC-2009152128

PATIENT
  Sex: Female
  Weight: 57.1 kg

DRUGS (5)
  1. XALATAN [Suspect]
     Indication: OPEN ANGLE GLAUCOMA
     Dosage: 1 GTT, 1X/DAY
     Dates: start: 20041104, end: 20061101
  2. XALATAN [Suspect]
     Dosage: 2 GTT, 1X/DAY
     Route: 047
     Dates: start: 20081113
  3. ASPIRIN [Concomitant]
     Indication: ARTHRITIS
     Dosage: UNK
  4. NUTRITIONAL SUPPLEMENT [Concomitant]
     Dosage: UNK
  5. VITAMINS [Concomitant]
     Dosage: UNK

REACTIONS (2)
  - DEATH [None]
  - GLAUCOMA [None]
